FAERS Safety Report 25370655 (Version 1)
Quarter: 2025Q2

REPORT INFORMATION
  Report Type: Spontaneous
  Country: US (occurrence: US)
  Receive Date: 20250528
  Receipt Date: 20250528
  Transmission Date: 20250717
  Serious: Yes (Hospitalization)
  Sender: IRON THERAPEUTICS
  Company Number: US-SHIELD THERAPEUTICS-US-STX-25-00214

PATIENT
  Age: 66 Year
  Sex: Female

DRUGS (3)
  1. ACCRUFER [Suspect]
     Active Substance: FERRIC MALTOL
     Indication: Chronic kidney disease
     Dosage: 30 MILLIGRAM, BID
     Route: 048
     Dates: start: 20240611
  2. LORATADINE [Concomitant]
     Active Substance: LORATADINE
     Indication: Product used for unknown indication
     Route: 065
  3. ELIQUIS [Concomitant]
     Active Substance: APIXABAN
     Indication: Product used for unknown indication
     Route: 065

REACTIONS (3)
  - Pneumonia [Unknown]
  - Off label use [Unknown]
  - Treatment noncompliance [Unknown]
